FAERS Safety Report 8135686-1 (Version None)
Quarter: 2012Q1

REPORT INFORMATION
  Report Type: 
  Country: None (occurrence: None)
  Receive Date: 20120103
  Receipt Date: 20111102
  Transmission Date: 20120608
  Serious: No
  Sender: FDA-Public Use
  Company Number: AE-2011-003017

PATIENT
  Sex: Male

DRUGS (3)
  1. PEGASYS [Concomitant]
  2. INCIVEK [Suspect]
     Dosage: 6 DOSAGE FORMS (2 DOSAGE FORMS, 3 IN 1 D), ORAL
     Route: 048
     Dates: start: 20111030
  3. RIBAVIRIN [Concomitant]

REACTIONS (3)
  - ARTHRALGIA [None]
  - NAUSEA [None]
  - CHILLS [None]
